FAERS Safety Report 8989947 (Version 2)
Quarter: 2013Q1

REPORT INFORMATION
  Report Type: Spontaneous
  Country: JP (occurrence: JP)
  Receive Date: 20121228
  Receipt Date: 20130130
  Transmission Date: 20140127
  Serious: No
  Sender: FDA-Public Use
  Company Number: JP-GLAXOSMITHKLINE-B0854871A

PATIENT
  Sex: Male

DRUGS (31)
  1. SERETIDE (50MCG/250MCG) [Suspect]
     Indication: CHRONIC OBSTRUCTIVE PULMONARY DISEASE
     Dosage: 250MCG TWICE PER DAY
     Route: 055
     Dates: start: 20121120
  2. PALNAC [Concomitant]
     Dosage: .2MG PER DAY
     Route: 048
  3. YODEL S [Concomitant]
     Dosage: 80MG PER DAY
     Route: 048
  4. HALCION [Concomitant]
     Dosage: .25MG PER DAY
     Route: 048
  5. GOODMIN [Concomitant]
     Dosage: .5MG PER DAY
     Route: 048
  6. MAGLAX [Concomitant]
     Dosage: 500MG THREE TIMES PER DAY
     Route: 048
  7. BAYASPIRIN [Concomitant]
     Dosage: 100MG PER DAY
     Route: 048
  8. MICARDIS [Concomitant]
     Dosage: 40MG PER DAY
     Route: 048
  9. ATORVASTATIN [Concomitant]
     Dosage: 10MG PER DAY
     Route: 048
  10. MYSLEE [Concomitant]
     Dosage: 5MG PER DAY
     Route: 048
  11. MYSLEE [Concomitant]
     Route: 048
  12. DESYREL [Concomitant]
     Dosage: 25MG PER DAY
     Route: 048
  13. BORRAZA-G [Concomitant]
     Dosage: 1IUAX PER DAY
     Route: 054
  14. KENEI G [Concomitant]
     Route: 054
  15. POSTERISAN [Concomitant]
     Route: 061
  16. NEO-AMUNOLL [Concomitant]
     Dosage: 1G THREE TIMES PER DAY
     Route: 048
  17. MEDICON [Concomitant]
     Dosage: 30MG THREE TIMES PER DAY
     Route: 048
  18. MEDICON [Concomitant]
     Dosage: 15MG THREE TIMES PER DAY
     Route: 048
  19. AMBROXOL HYDROCHLORIDE [Concomitant]
     Dosage: 15MG THREE TIMES PER DAY
     Route: 048
  20. CLARITH [Concomitant]
     Dosage: 200MG TWICE PER DAY
     Route: 048
  21. SELTEPNON [Concomitant]
     Dosage: 50MG THREE TIMES PER DAY
     Route: 048
  22. SINGULAIR [Concomitant]
     Dosage: 10MG PER DAY
     Route: 048
  23. LEVITRA [Concomitant]
     Route: 048
  24. AMOXAN [Concomitant]
     Route: 048
  25. TRISHI [Concomitant]
     Route: 048
  26. MYRONIN [Concomitant]
     Route: 048
  27. BETAMAC T [Concomitant]
     Route: 048
  28. PELUSARL [Concomitant]
     Route: 048
  29. ORYZANOL [Concomitant]
     Route: 048
  30. DIAZEPAM [Concomitant]
     Route: 065
  31. SOLANAX [Concomitant]
     Route: 048

REACTIONS (1)
  - Dysuria [Recovered/Resolved]
